FAERS Safety Report 5387221-9 (Version None)
Quarter: 2007Q3

REPORT INFORMATION
  Report Type: 
  Country: None (occurrence: None)
  Receive Date: 20070716
  Receipt Date: 20070704
  Transmission Date: 20080115
  Serious: Yes (Hospitalization)
  Sender: FDA-Public Use
  Company Number: JP-SP-2007-02069

PATIENT
  Age: 70 Year
  Sex: Male

DRUGS (5)
  1. IMMUCYST [Suspect]
     Indication: BLADDER CANCER
     Route: 043
     Dates: start: 20070328, end: 20070509
  2. IMMUCYST [Suspect]
     Route: 043
     Dates: start: 20070328, end: 20070509
  3. AMLODIPINE BESYLATE [Concomitant]
     Route: 048
  4. ASPIRIN/ASCORBIC ACID [Concomitant]
     Dosage: 1 TAB
     Route: 048
  5. CETRAXATE HYDROCHLORIDE [Concomitant]
     Route: 048

REACTIONS (5)
  - BLADDER PAIN [None]
  - DYSURIA [None]
  - MALAISE [None]
  - POLLAKIURIA [None]
  - PYREXIA [None]
